FAERS Safety Report 7392938-0 (Version None)
Quarter: 2011Q2

REPORT INFORMATION
  Report Type: 
  Country: None (occurrence: None)
  Receive Date: 20110404
  Receipt Date: 20110325
  Transmission Date: 20111010
  Serious: Yes (Hospitalization)
  Sender: FDA-Public Use
  Company Number: US-ASTRAZENECA-2011SE17567

PATIENT
  Sex: Male

DRUGS (3)
  1. NEXIUM [Suspect]
     Route: 048
  2. PULMICORT RESPULES [Concomitant]
     Route: 055
  3. CRESTOR [Suspect]
     Route: 048

REACTIONS (2)
  - NASOPHARYNGEAL SURGERY [None]
  - SINUSITIS [None]
